FAERS Safety Report 9555915 (Version 1)
Quarter: 2013Q3

REPORT INFORMATION
  Report Type: Spontaneous
  Country: US (occurrence: None)
  Receive Date: 20130823
  Receipt Date: 20130823
  Transmission Date: 20140515
  Serious: Yes (Other)
  Sender: FDA-Public Use
  Company Number: SYM-2013-04682

PATIENT
  Age: 46 Year
  Sex: Female

DRUGS (1)
  1. TAMBOCOR [Suspect]
     Indication: ARRHYTHMIA

REACTIONS (4)
  - Toxicity to various agents [None]
  - Electrocardiogram PR prolongation [None]
  - Electrocardiogram QT prolonged [None]
  - Bundle branch block bilateral [None]
